FAERS Safety Report 8756915 (Version 1)
Quarter: 2012Q4

REPORT INFORMATION
  Report Type: 
  Country: US (occurrence: US)
  Receive Date: 20120903
  Receipt Date: 20120903
  Transmission Date: 20130627
  Serious: Yes (Death)
  Sender: FDA-Public Use
  Company Number: US-PFIZER INC-2012208329

PATIENT
  Age: 38 Year
  Sex: Female

DRUGS (1)
  1. VFEND [Suspect]
     Indication: PANCREAS TRANSPLANT
     Dosage: 200 mg, 2x/day
     Route: 048
     Dates: start: 20120612

REACTIONS (1)
  - Sepsis [Fatal]
